FAERS Safety Report 8437635-5 (Version None)
Quarter: 2012Q2

REPORT INFORMATION
  Report Type: 
  Country: None (occurrence: None)
  Receive Date: 20120614
  Receipt Date: 20120427
  Transmission Date: 20120825
  Serious: No
  Sender: FDA-Public Use
  Company Number: US-AMGEN-USASP2012026791

PATIENT
  Age: 61 Year
  Sex: Female

DRUGS (4)
  1. PLAQUENIL [Concomitant]
  2. LIPITOR [Concomitant]
     Dosage: UNK
  3. PROLIA [Suspect]
     Indication: OSTEOPOROSIS POSTMENOPAUSAL
     Dosage: UNK UNK, Q6MO
     Dates: start: 20120327
  4. ATENOLOL [Concomitant]
     Dosage: UNK

REACTIONS (9)
  - ASTHENIA [None]
  - RASH VESICULAR [None]
  - INFLUENZA LIKE ILLNESS [None]
  - DISTURBANCE IN ATTENTION [None]
  - HYPERHIDROSIS [None]
  - PAIN [None]
  - FEELING HOT [None]
  - DECREASED APPETITE [None]
  - CHILLS [None]
